FAERS Safety Report 6240248-7 (Version None)
Quarter: 2009Q2

REPORT INFORMATION
  Report Type: 
  Country: None (occurrence: None)
  Receive Date: 20090623
  Receipt Date: 20080507
  Transmission Date: 20091009
  Serious: No
  Sender: FDA-Public Use
  Company Number: US-ASTRAZENECA-2008UW09381

PATIENT
  Age: 34 Year
  Sex: Female
  Weight: 113.4 kg

DRUGS (5)
  1. PULMICORT FLEXHALER [Suspect]
     Indication: BRONCHITIS
     Route: 055
  2. ALBUTEROL [Concomitant]
  3. ZITHROMAX [Concomitant]
  4. PEPCID [Concomitant]
  5. KEFLEX [Concomitant]

REACTIONS (2)
  - DRUG EXPOSURE DURING PREGNANCY [None]
  - INCORRECT DOSE ADMINISTERED [None]
